FAERS Safety Report 4942333-6 (Version None)
Quarter: 2006Q1

REPORT INFORMATION
  Report Type: 
  Country: None (occurrence: None)
  Receive Date: 20060313
  Receipt Date: 20051221
  Transmission Date: 20060701
  Serious: No
  Sender: FDA-Public Use
  Company Number: US-GLAXOSMITHKLINE-A0586598A

PATIENT
  Age: 61 Year
  Sex: Male

DRUGS (2)
  1. NICORETTE [Suspect]
     Dates: end: 20051221
  2. XANAX [Concomitant]

REACTIONS (5)
  - AGITATION [None]
  - ASTHENIA [None]
  - DIFFICULTY IN WALKING [None]
  - NAUSEA [None]
  - VISION BLURRED [None]
